FAERS Safety Report 5314391-0 (Version None)
Quarter: 2007Q1

REPORT INFORMATION
  Report Type: 
  Country: None (occurrence: None)
  Receive Date: 20070130
  Receipt Date: 20060103
  Transmission Date: 20070707
  Serious: Yes (Other)
  Sender: FDA-Public Use
  Company Number: 144156USA

PATIENT
  Age: 56 Year
  Sex: Female

DRUGS (7)
  1. COPAXONE [Suspect]
     Indication: MULTIPLE SCLEROSIS
     Dosage: (20 MG), SUBCUTANEOUS
     Route: 058
     Dates: start: 20050401
  2. FLUOXETINE [Concomitant]
  3. LEVOTHYROXINE SODIUM [Concomitant]
  4. OMEPRAZOLE [Concomitant]
  5. FLUTICASONE PROPIONATE [Concomitant]
  6. SIMVASTATIN [Concomitant]
  7. SALBUTAMOL [Concomitant]

REACTIONS (6)
  - CHEST PAIN [None]
  - FEELING ABNORMAL [None]
  - HEADACHE [None]
  - SHOCK [None]
  - SYNCOPE [None]
  - VOMITING [None]
